FAERS Safety Report 13289381 (Version 2)
Quarter: 2017Q2

REPORT INFORMATION
  Report Type: Spontaneous
  Country: US (occurrence: US)
  Receive Date: 20170303
  Receipt Date: 20170417
  Transmission Date: 20170830
  Serious: No
  Sender: FDA-Public Use
  Company Number: US-TEVA-743617ACC

PATIENT
  Age: 70 Year
  Sex: Female

DRUGS (46)
  1. MELOXICAM. [Concomitant]
     Active Substance: MELOXICAM
     Dates: start: 20090106
  2. GABAPENTIN. [Concomitant]
     Active Substance: GABAPENTIN
     Dates: start: 20090203
  3. HYDROXYZ HCL [Concomitant]
     Active Substance: HYDROXYZINE HYDROCHLORIDE
     Dates: start: 20091012
  4. HYDROCO/APAP [Concomitant]
     Active Substance: ACETAMINOPHEN\HYDROCODONE
     Dosage: FORM STRENGTH: 7.5/500 MG
     Dates: start: 20100325
  5. KLONOPIN [Concomitant]
     Active Substance: CLONAZEPAM
     Dates: start: 20100128
  6. GABAPENTIN. [Concomitant]
     Active Substance: GABAPENTIN
     Dates: start: 20090908
  7. TRAMADOL HCL [Concomitant]
     Active Substance: TRAMADOL HYDROCHLORIDE
  8. MIRTAZAPINE. [Concomitant]
     Active Substance: MIRTAZAPINE
  9. CYCLOBENZAPR [Concomitant]
     Dates: start: 20090325
  10. LEXAPRO [Concomitant]
     Active Substance: ESCITALOPRAM OXALATE
     Dates: start: 20100128
  11. FLECTOR DIS [Concomitant]
     Dosage: FORM STRENGTH: 1.3 PERCENT
     Dates: start: 20100310
  12. TYLENOL [Concomitant]
     Active Substance: ACETAMINOPHEN
  13. SIMVASTATIN. [Concomitant]
     Active Substance: SIMVASTATIN
  14. COPAXONE [Suspect]
     Active Substance: GLATIRAMER ACETATE
     Indication: MULTIPLE SCLEROSIS
     Route: 058
     Dates: start: 20100409
  15. FENTANYL DIS [Concomitant]
     Dosage: FORM STRENGTH: 50 MCG/HR
     Dates: start: 20091105
  16. HYDROCO/APAP [Concomitant]
     Active Substance: ACETAMINOPHEN\HYDROCODONE
     Dosage: FORM STRENGTH: 10/500 MG
     Dates: start: 20090325
  17. SUBOXONE SUB 8-2MG [Concomitant]
  18. TIZANIDINE. [Concomitant]
     Active Substance: TIZANIDINE
  19. OSTEO BI-FLEX TAB JNT SHLD [Concomitant]
  20. AGGRENOX [Concomitant]
     Active Substance: ASPIRIN\DIPYRIDAMOLE
     Dosage: FORM STRENGTH: 25-200MG
  21. LEVOTHYROXIN [Concomitant]
     Active Substance: LEVOTHYROXINE
     Dates: start: 20090110
  22. FENTANYL DIS [Concomitant]
     Dosage: FORM STRENGTH: 25 MCG/HR
     Dates: start: 20100128
  23. METHYLPRED PAK [Concomitant]
     Dates: start: 20100507
  24. METOPROL TAR [Concomitant]
  25. AMANTADINE. [Concomitant]
     Active Substance: AMANTADINE HYDROCHLORIDE
  26. LEVOTHYROXIN [Concomitant]
     Active Substance: LEVOTHYROXINE
     Dates: start: 20100602
  27. LEVETIRACETA [Concomitant]
     Dates: start: 20101102
  28. ZOLPIDEM [Concomitant]
     Active Substance: ZOLPIDEM\ZOLPIDEM TARTRATE
  29. SMZ-TMP DS 800-160 [Concomitant]
  30. OXYCODONE AND ACETAMINOPHEN [Concomitant]
     Active Substance: ACETAMINOPHEN\OXYCODONE HYDROCHLORIDE
     Dosage: FORM STRENGTH  7.5-325
  31. CITALOPRAM [Concomitant]
     Active Substance: CITALOPRAM HYDROBROMIDE
  32. LEVOTHYROXIN [Concomitant]
     Active Substance: LEVOTHYROXINE
     Dates: start: 20100701
  33. FENTANYL DIS [Concomitant]
     Dosage: FORM STRENGTH: 12 MCG/HR
     Dates: start: 20090203
  34. FENTANYL DIS [Concomitant]
     Dosage: FORM STRENGTH: 25 MCG/HR
     Dates: start: 20061210
  35. CLONAZEPAM. [Concomitant]
     Active Substance: CLONAZEPAM
     Dates: start: 20110208
  36. SYNTHROID [Concomitant]
     Active Substance: LEVOTHYROXINE SODIUM
  37. TEMAZEPAM. [Concomitant]
     Active Substance: TEMAZEPAM
  38. MOBIC [Concomitant]
     Active Substance: MELOXICAM
  39. FENTANYL DIS [Concomitant]
     Dosage: FORM STRENGTH: 5MCG/HR
     Dates: start: 20090622
  40. FENTANYL DIS [Concomitant]
     Dosage: FORM STRENGTH: 50 MCG/HR
     Dates: start: 20090224
  41. MELOXICAM. [Concomitant]
     Active Substance: MELOXICAM
     Dates: start: 20100128
  42. LEXAPRO [Concomitant]
     Active Substance: ESCITALOPRAM OXALATE
     Dates: start: 20080930
  43. GABAPENTIN. [Concomitant]
     Active Substance: GABAPENTIN
     Dates: start: 20110210
  44. HYDROCO/APAP [Concomitant]
     Active Substance: ACETAMINOPHEN\HYDROCODONE
     Dosage: FORM STRENGTH: 5/500 MG
     Dates: start: 20100409
  45. PROBIOTIC [Concomitant]
     Active Substance: PROBIOTICS NOS
  46. OXYCODONE [Concomitant]
     Active Substance: OXYCODONE

REACTIONS (3)
  - Fall [Unknown]
  - Pruritus [Unknown]
  - Back pain [Unknown]

NARRATIVE: CASE EVENT DATE: 201610
